FAERS Safety Report 8898495 (Version 1)
Quarter: 2012Q4

REPORT INFORMATION
  Report Type: 
  Country: US (occurrence: US)
  Receive Date: 20121109
  Receipt Date: 20121109
  Transmission Date: 20130627
  Serious: No
  Sender: FDA-Public Use
  Company Number: US-B.I. PHARMACEUTICALS,INC./RIDGEFIELD-2012-BP-27408BP

PATIENT
  Age: 80 Year
  Sex: Male

DRUGS (20)
  1. PRADAXA [Suspect]
     Indication: ATRIAL FIBRILLATION
     Dosage: 300 mg
     Route: 048
     Dates: start: 2011
  2. BILBERRY FRUIT EXTRACT [Concomitant]
     Route: 048
  3. METOPROLOL [Concomitant]
     Indication: ATRIAL FIBRILLATION
     Dosage: 50 mg
     Route: 048
  4. METOPROLOL [Concomitant]
     Indication: SUPRAVENTRICULAR TACHYCARDIA
  5. PROPAFENONE [Concomitant]
     Indication: ATRIAL FIBRILLATION
     Dosage: 450 mg
     Route: 048
  6. PROPAFENONE [Concomitant]
     Indication: SUPRAVENTRICULAR TACHYCARDIA
  7. LOSARTAN [Concomitant]
     Indication: HYPERTENSION
     Dosage: 25 mg
     Route: 048
  8. ALPHA LIPOIC ACID [Concomitant]
     Dosage: 200 mg
     Route: 048
  9. PRANDIN [Concomitant]
     Indication: DIABETES MELLITUS
     Dosage: 8 mg
     Route: 048
  10. NOVOLOG [Concomitant]
     Indication: DIABETES MELLITUS
     Route: 058
  11. LEVEMIR [Concomitant]
     Indication: DIABETES MELLITUS
     Dosage: 10 U
     Route: 058
  12. COENZYME Q10 [Concomitant]
     Dosage: 200 mg
     Route: 048
  13. GARLIC OIL [Concomitant]
     Route: 048
  14. HAWTHORN BERRY [Concomitant]
     Dosage: 1000 mg
     Route: 048
  15. MAGNESIUM [Concomitant]
     Dosage: 200 mg
     Route: 048
  16. MULTIVITAMINS WITH MINERALS [Concomitant]
     Route: 048
  17. OMEGA 369 [Concomitant]
     Dosage: 2400 mg
     Route: 048
  18. SAW PALMETTO [Concomitant]
     Dosage: 320 mg
     Route: 048
  19. VITAMIN C [Concomitant]
     Dosage: 1000 mg
     Route: 048
  20. VITAMIN D3 [Concomitant]
     Dosage: 1200 U
     Route: 048

REACTIONS (2)
  - Product quality issue [Not Recovered/Not Resolved]
  - Wrong technique in drug usage process [Not Recovered/Not Resolved]
